FAERS Safety Report 19665931 (Version 1)
Quarter: 2021Q3

REPORT INFORMATION
  Report Type: Spontaneous
  Country: US (occurrence: US)
  Receive Date: 20210806
  Receipt Date: 20210806
  Transmission Date: 20211014
  Serious: Yes (Hospitalization, Other)
  Sender: FDA-Public Use
  Company Number: None

PATIENT
  Age: 62 Year
  Sex: Male
  Weight: 99.9 kg

DRUGS (3)
  1. METOPROLOL. [Concomitant]
     Active Substance: METOPROLOL
  2. INJECTABLE THROMBIN [Suspect]
     Active Substance: THROMBIN
     Indication: VASCULAR PSEUDOANEURYSM
     Route: 042
     Dates: start: 20210506, end: 20210507
  3. ELIQUIS [Concomitant]
     Active Substance: APIXABAN

REACTIONS (7)
  - Constipation [None]
  - Portal vein thrombosis [None]
  - Abdominal pain [None]
  - Drug monitoring procedure not performed [None]
  - Nausea [None]
  - Vomiting [None]
  - Intentional product use issue [None]

NARRATIVE: CASE EVENT DATE: 20210506
